FAERS Safety Report 5875069-8 (Version None)
Quarter: 2008Q3

REPORT INFORMATION
  Report Type: 
  Country: None (occurrence: None)
  Receive Date: 20080909
  Receipt Date: 20080901
  Transmission Date: 20090109
  Serious: Yes (Hospitalization)
  Sender: FDA-Public Use
  Company Number: JP-BRISTOL-MYERS SQUIBB COMPANY-14327233

PATIENT
  Age: 52 Year
  Sex: Male
  Weight: 55 kg

DRUGS (7)
  1. ABILIFY [Suspect]
     Indication: SCHIZOPHRENIA
     Dosage: INITIATED:14-23APR08,6MG/D;24APR-21MAY08,12MG/D;22MAY-07AUG08,6MG,TID;08-24AUG08,12MG/D,ORAL.
     Route: 048
     Dates: start: 20080414, end: 20080824
  2. NITRAZEPAM [Concomitant]
     Dates: start: 20080319
  3. MAGNESIUM OXIDE [Concomitant]
     Dates: start: 20080327, end: 20080813
  4. SENNOSIDE [Concomitant]
     Dates: start: 20080327
  5. BIPERIDEN HYDROCHLORIDE TAB [Concomitant]
     Dates: start: 20080331
  6. CHLORPROMAZINE HCL [Concomitant]
  7. RIVOTRIL [Concomitant]
     Dates: start: 20080807

REACTIONS (1)
  - SCHIZOPHRENIA [None]
